FAERS Safety Report 12327275 (Version 1)
Quarter: 2016Q2

REPORT INFORMATION
  Report Type: Spontaneous
  Country: TW (occurrence: TW)
  Receive Date: 20160503
  Receipt Date: 20160503
  Transmission Date: 20160815
  Serious: Yes (Hospitalization)
  Sender: FDA-Public Use
  Company Number: PHHY2016TW056786

PATIENT
  Age: 49 Year
  Sex: Male

DRUGS (8)
  1. OLANZAPINE. [Suspect]
     Active Substance: OLANZAPINE
     Indication: PSYCHOTIC DISORDER
     Dosage: 20 MG, QD
     Route: 065
  2. CHLORPROMAZINE. [Concomitant]
     Active Substance: CHLORPROMAZINE
     Indication: PSYCHOTIC DISORDER
     Dosage: 150 MG, UNK
     Route: 065
  3. SULPIRIDE [Concomitant]
     Active Substance: SULPIRIDE
     Indication: PSYCHOTIC DISORDER
     Dosage: 400 MG, QD
     Route: 065
  4. TRIFLUOPERAZINE [Concomitant]
     Active Substance: TRIFLUOPERAZINE\TRIFLUOPERAZINE HYDROCHLORIDE
     Indication: PSYCHOTIC DISORDER
     Dosage: 5 MG, BID
     Route: 065
  5. TRIHEXYPHENIDYL [Interacting]
     Active Substance: TRIHEXYPHENIDYL
     Indication: TARDIVE DYSKINESIA
     Dosage: 2 MG, BID
     Route: 065
  6. ALPRAZOLAM. [Concomitant]
     Active Substance: ALPRAZOLAM
     Indication: PSYCHOTIC DISORDER
     Dosage: 0.25 MG, BID
     Route: 065
  7. ESTAZOLAM. [Concomitant]
     Active Substance: ESTAZOLAM
     Indication: PSYCHOTIC DISORDER
     Dosage: 2 MG, UNK
     Route: 065
  8. TRAZODONE [Interacting]
     Active Substance: TRAZODONE HYDROCHLORIDE
     Indication: PSYCHOTIC DISORDER
     Dosage: 50 MG, UNK

REACTIONS (4)
  - Drug interaction [Unknown]
  - Tardive dyskinesia [Unknown]
  - Heat stroke [Unknown]
  - Pneumonia aspiration [Recovered/Resolved]
